FAERS Safety Report 9474547 (Version 2)
Quarter: 2013Q3

REPORT INFORMATION
  Report Type: Spontaneous
  Country: FR (occurrence: FR)
  Receive Date: 20130823
  Receipt Date: 20130823
  Transmission Date: 20140515
  Serious: Yes (Hospitalization)
  Sender: FDA-Public Use
  Company Number: FR-B.I. PHARMACEUTICALS,INC./RIDGEFIELD-2013-FF-01657FF

PATIENT
  Age: 80 Year
  Sex: Male

DRUGS (6)
  1. MICARDIS [Suspect]
     Indication: HYPERTENSION
     Dates: end: 20130211
  2. CORTANCYL [Suspect]
     Dosage: 80 MG
  3. IMUREL [Suspect]
     Route: 048
  4. MESTINON [Suspect]
     Route: 048
  5. DETENSIEL [Suspect]
     Indication: HYPERTENSION
     Dates: end: 20130211
  6. PRAVADUAL [Suspect]

REACTIONS (3)
  - Orthostatic hypotension [Recovered/Resolved]
  - Confusional state [Recovered/Resolved]
  - Abnormal behaviour [Recovered/Resolved]
